FAERS Safety Report 4616633-3 (Version None)
Quarter: 2005Q1

REPORT INFORMATION
  Report Type: 
  Country: None (occurrence: None)
  Receive Date: 20050321
  Receipt Date: 20050307
  Transmission Date: 20050727
  Serious: Yes (Other)
  Sender: FDA-Public Use
  Company Number: 26364

PATIENT
  Age: 58 Year
  Sex: Female

DRUGS (4)
  1. ALDARA [Suspect]
     Indication: ACTINIC KERATOSIS
     Dosage: UNSPEC. (3 IN 1 WEEK (S)) TOPICAL
     Route: 061
     Dates: start: 20050131, end: 20050220
  2. ALLEGRA [Concomitant]
  3. SINGULAIR [Concomitant]
  4. ADVAIR [Concomitant]

REACTIONS (10)
  - BODY TEMPERATURE INCREASED [None]
  - CHEST PAIN [None]
  - DIARRHOEA [None]
  - DYSPNOEA [None]
  - ERYTHEMA [None]
  - ERYTHEMA OF EYELID [None]
  - HEADACHE [None]
  - INFLAMMATION [None]
  - PHOTOSENSITIVITY REACTION [None]
  - PURULENT DISCHARGE [None]
